FAERS Safety Report 15066017 (Version 1)
Quarter: 2018Q2

REPORT INFORMATION
  Report Type: Spontaneous
  Country: US (occurrence: US)
  Receive Date: 20180605
  Receipt Date: 20180605
  Transmission Date: 20180711
  Serious: Yes (Hospitalization)
  Sender: FDA-Public Use
  Company Number: None

PATIENT
  Age: 57 Year
  Sex: Female
  Weight: 73 kg

DRUGS (2)
  1. AFTAINIB INVESTIGATIONAL AGENT [Concomitant]
     Dates: start: 20171109, end: 20180509
  2. NIVOLUMAB [Suspect]
     Active Substance: NIVOLUMAB
     Indication: LUNG NEOPLASM MALIGNANT
     Route: 041
     Dates: start: 20180518, end: 20180605

REACTIONS (1)
  - Colitis [None]

NARRATIVE: CASE EVENT DATE: 20180604
